FAERS Safety Report 9133226 (Version 1)
Quarter: 2013Q1

REPORT INFORMATION
  Report Type: Spontaneous
  Country: US (occurrence: US)
  Receive Date: 20130126
  Receipt Date: 20130126
  Transmission Date: 20140127
  Serious: No
  Sender: FDA-Public Use
  Company Number: US-009507513-1301USA007888

PATIENT
  Age: 34 Year
  Sex: Female

DRUGS (2)
  1. ZIOPTAN [Suspect]
     Indication: INTRAOCULAR PRESSURE INCREASED
  2. ABILIFY [Concomitant]

REACTIONS (2)
  - Abnormal sensation in eye [Unknown]
  - Drug dose omission [Unknown]
